APPROVED DRUG PRODUCT: BETATREX
Active Ingredient: BETAMETHASONE VALERATE
Strength: EQ 0.1% BASE
Dosage Form/Route: OINTMENT;TOPICAL
Application: N018863 | Product #001
Applicant: SAVAGE LABORATORIES INC DIV ALTANA INC
Approved: Aug 31, 1983 | RLD: No | RS: No | Type: DISCN